FAERS Safety Report 14821803 (Version 1)
Quarter: 2018Q2

REPORT INFORMATION
  Report Type: Spontaneous
  Country: US (occurrence: US)
  Receive Date: 20180427
  Receipt Date: 20180427
  Transmission Date: 20180711
  Serious: Yes (Other)
  Sender: FDA-Public Use
  Company Number: US-BAYER-2018-078944

PATIENT
  Sex: Male

DRUGS (1)
  1. AVELOX [Suspect]
     Active Substance: MOXIFLOXACIN HYDROCHLORIDE
     Indication: BRAIN ABSCESS
     Dosage: 400 MG, QD
     Route: 065

REACTIONS (3)
  - Brain abscess [None]
  - Off label use [None]
  - Product use in unapproved indication [None]
